FAERS Safety Report 13373815 (Version 1)
Quarter: 2017Q1

REPORT INFORMATION
  Report Type: Spontaneous
  Country: US (occurrence: US)
  Receive Date: 20170327
  Receipt Date: 20170327
  Transmission Date: 20170429
  Serious: No
  Sender: FDA-Public Use
  Company Number: None

PATIENT
  Sex: Male

DRUGS (1)
  1. SACUBITRIL-VALSARTAN [Suspect]
     Active Substance: SACUBITRIL\VALSARTAN
     Indication: CARDIAC FAILURE
     Route: 048

REACTIONS (4)
  - Urticaria [None]
  - Erythema [None]
  - Blood pressure systolic decreased [None]
  - Inflammation [None]
